FAERS Safety Report 7920839-5 (Version None)
Quarter: 2011Q4

REPORT INFORMATION
  Report Type: 
  Country: None (occurrence: None)
  Receive Date: 20111117
  Receipt Date: 20110801
  Transmission Date: 20120403
  Serious: No
  Sender: FDA-Public Use
  Company Number: US-GLAXOSMITHKLINE-A0939936A

PATIENT
  Age: 70 Year
  Sex: Male
  Weight: 71.8 kg

DRUGS (2)
  1. UNKNOWN [Concomitant]
  2. VOTRIENT [Suspect]
     Indication: MALIGNANT NEOPLASM OF RENAL PELVIS
     Dosage: 800MG PER DAY
     Route: 048
     Dates: start: 20100420, end: 20100719

REACTIONS (4)
  - BLOOD CREATININE INCREASED [None]
  - BLOOD UREA INCREASED [None]
  - DRUG INEFFECTIVE [None]
  - DISEASE PROGRESSION [None]
